FAERS Safety Report 5696004-1 (Version None)
Quarter: 2008Q2

REPORT INFORMATION
  Report Type: 
  Country: None (occurrence: None)
  Receive Date: 20080407
  Receipt Date: 20080326
  Transmission Date: 20081010
  Serious: Yes (Hospitalization)
  Sender: FDA-Public Use
  Company Number: US-MERCK-96050690

PATIENT
  Age: 63 Year
  Sex: Female

DRUGS (5)
  1. FOSAMAX [Suspect]
     Indication: OSTEOPENIA
     Route: 048
     Dates: start: 19950101, end: 19960501
  2. FOSAMAX [Suspect]
     Route: 048
     Dates: end: 20070101
  3. DIGOXIN [Concomitant]
     Route: 065
  4. VITAMINS [Concomitant]
     Route: 065
  5. TENORMIN [Concomitant]
     Route: 065

REACTIONS (10)
  - ARTHRALGIA [None]
  - ATRIAL FIBRILLATION [None]
  - DYSSTASIA [None]
  - JOINT SWELLING [None]
  - MUSCLE SPASMS [None]
  - MYALGIA [None]
  - OEDEMA PERIPHERAL [None]
  - RASH [None]
  - VIRAL INFECTION [None]
  - WRONG TECHNIQUE IN DRUG USAGE PROCESS [None]
